FAERS Safety Report 10564656 (Version 9)
Quarter: 2015Q2

REPORT INFORMATION
  Report Type: Report from Study
  Country: US (occurrence: US)
  Receive Date: 20141104
  Receipt Date: 20150512
  Transmission Date: 20150821
  Serious: Yes (Hospitalization, Disabling, Other)
  Sender: FDA-Public Use
  Company Number: US-AMGEN-USASL2014084117

PATIENT
  Age: 69 Year
  Sex: Female
  Weight: 56.24 kg

DRUGS (11)
  1. FERROUS SULFATE [Concomitant]
     Active Substance: FERROUS SULFATE\FERROUS SULFATE, DRIED
  2. CALCIUM [Concomitant]
     Active Substance: CALCIUM
     Indication: OSTEOPOROSIS
     Dosage: 2000 UNK, QD
     Route: 048
  3. OXYBUTYNIN [Concomitant]
     Active Substance: OXYBUTYNIN
     Dosage: 5 MG, UNK
     Route: 048
  4. PROLIA [Suspect]
     Active Substance: DENOSUMAB
     Indication: OSTEOPOROSIS POSTMENOPAUSAL
     Dosage: 60 MG, Q6MO
     Route: 058
     Dates: start: 20140312, end: 20140312
  5. VITAMIN D                          /00107901/ [Concomitant]
     Active Substance: ERGOCALCIFEROL
     Indication: OSTEOPOROSIS
     Dosage: 600 UNK, BID
     Route: 048
  6. LEVOTHYROXINE SODIUM. [Concomitant]
     Active Substance: LEVOTHYROXINE SODIUM
     Dosage: 75 MUG, UNK
     Route: 048
  7. MULTIVITAMINS [Concomitant]
     Active Substance: VITAMINS
  8. MIRALAX [Concomitant]
     Active Substance: POLYETHYLENE GLYCOL 3350
  9. ACETAMINOPHEN AND CODEINE [Concomitant]
     Active Substance: ACETAMINOPHEN\CODEINE PHOSPHATE
     Dosage: 30 MG, UNK
     Route: 048
  10. BISACODYL. [Concomitant]
     Active Substance: BISACODYL
     Dosage: 10 MG, UNK
  11. VITAMIN D3 [Concomitant]
     Active Substance: CHOLECALCIFEROL
     Dosage: 1000 UNIT, UNK

REACTIONS (20)
  - Hip fracture [Unknown]
  - Chromaturia [Unknown]
  - Fall [Unknown]
  - Haemoglobin decreased [Unknown]
  - Hypocalcaemia [Unknown]
  - Pain in jaw [Unknown]
  - Procedural haemorrhage [Unknown]
  - Anaemia postoperative [Unknown]
  - Urinary tract infection [Recovered/Resolved]
  - Immobile [Unknown]
  - Spinal disorder [Unknown]
  - Injury [Unknown]
  - Limb asymmetry [Unknown]
  - Post procedural complication [Not Recovered/Not Resolved]
  - Arthralgia [Unknown]
  - Atypical femur fracture [Unknown]
  - Wheelchair user [Unknown]
  - Pain [Unknown]
  - Back pain [Unknown]
  - Gait disturbance [Unknown]

NARRATIVE: CASE EVENT DATE: 2014
